FAERS Safety Report 18439895 (Version 1)
Quarter: 2020Q4

REPORT INFORMATION
  Report Type: Spontaneous
  Country: US (occurrence: US)
  Receive Date: 20201028
  Receipt Date: 20201028
  Transmission Date: 20210114
  Serious: Yes (Hospitalization)
  Sender: FDA-Public Use
  Company Number: None

PATIENT
  Age: 44 Year
  Sex: Male
  Weight: 63.5 kg

DRUGS (6)
  1. HEPARIN [Concomitant]
     Active Substance: HEPARIN SODIUM
     Dates: start: 20201002, end: 20201005
  2. REMDESIVIR. [Concomitant]
     Active Substance: REMDESIVIR
     Dates: start: 20200928, end: 20201002
  3. DEXAMETHASONE 6MG DAILY IV [Concomitant]
     Dates: start: 20200929, end: 20201010
  4. COVID-19 CONVALESCENT PLASMA. [Suspect]
     Active Substance: COVID-19 CONVALESCENT PLASMA
     Indication: COVID-19
     Dosage: ?          OTHER FREQUENCY:1 UNIT GIVEN;?
     Route: 042
     Dates: start: 20200929, end: 20200929
  5. APIXABAN [Concomitant]
     Active Substance: APIXABAN
     Dates: start: 20201005
  6. ENOXAPARIN 40MG SUBQ DAILY [Concomitant]
     Dates: start: 20200929, end: 20201002

REACTIONS (6)
  - Fatigue [None]
  - Pain [None]
  - Malaise [None]
  - Chills [None]
  - Embolism [None]
  - Pulmonary embolism [None]

NARRATIVE: CASE EVENT DATE: 20201002
